FAERS Safety Report 18076832 (Version 3)
Quarter: 2020Q4

REPORT INFORMATION
  Report Type: Report from Study
  Country: None (occurrence: US)
  Receive Date: 20200728
  Receipt Date: 20201104
  Transmission Date: 20210113
  Serious: Yes (Other)
  Sender: FDA-Public Use
  Company Number: US-ABBVIE-20K-163-3498490-00

PATIENT
  Age: 71 Year
  Sex: Female

DRUGS (1)
  1. HUMIRA [Suspect]
     Active Substance: ADALIMUMAB
     Indication: RHEUMATOID ARTHRITIS
     Route: 058
     Dates: start: 20191018

REACTIONS (11)
  - Diarrhoea [Recovered/Resolved]
  - Arthralgia [Recovering/Resolving]
  - Headache [Unknown]
  - Colitis [Unknown]
  - Pain [Unknown]
  - Anxiety [Unknown]
  - Pain in extremity [Unknown]
  - Spinal compression fracture [Not Recovered/Not Resolved]
  - Gait disturbance [Unknown]
  - Fatigue [Not Recovered/Not Resolved]
  - Nephrolithiasis [Unknown]

NARRATIVE: CASE EVENT DATE: 202006
